FAERS Safety Report 8189670-2 (Version None)
Quarter: 2012Q1

REPORT INFORMATION
  Report Type: 
  Country: None (occurrence: None)
  Receive Date: 20120305
  Receipt Date: 20120217
  Transmission Date: 20120608
  Serious: Yes (Other)
  Sender: FDA-Public Use
  Company Number: GPV/BRA/12/0023147

PATIENT
  Age: 55 Year
  Sex: Male
  Weight: 110 kg

DRUGS (5)
  1. CARVEDILOL [Concomitant]
  2. SIMVASTATIN [Concomitant]
  3. LOSARTAN POTASSIUM [Concomitant]
  4. CLOPIDOGREL BISULFATE [Suspect]
     Indication: THROMBOSIS
     Dosage: 1 IN 24 HR, ORAL
     Route: 048
     Dates: start: 20110201, end: 20110601
  5. ASPIRIN [Concomitant]

REACTIONS (1)
  - RENAL PAIN [None]
